FAERS Safety Report 6272620-3 (Version None)
Quarter: 2009Q3

REPORT INFORMATION
  Report Type: 
  Country: None (occurrence: None)
  Receive Date: 20090713
  Receipt Date: 20090113
  Transmission Date: 20100115
  Serious: Yes (Other)
  Sender: FDA-Public Use
  Company Number: 607985

PATIENT
  Age: 62 Year
  Sex: Female

DRUGS (5)
  1. BONIVA [Suspect]
     Indication: DRUG USE FOR UNKNOWN INDICATION
     Dosage: 150 MG 1 PER MONTH ORAL
     Route: 048
     Dates: start: 20050101, end: 20080101
  2. FOSAMAX [Suspect]
     Indication: OSTEOPOROSIS
     Dosage: 1 PER WEEK ORAL
     Route: 048
     Dates: start: 20000101, end: 20050101
  3. ZETIA [Concomitant]
  4. CALCIUM (CALCIUM) [Concomitant]
  5. ADVIL [Concomitant]

REACTIONS (2)
  - BONE DISORDER [None]
  - JAW DISORDER [None]
